FAERS Safety Report 22783538 (Version 4)
Quarter: 2024Q1

REPORT INFORMATION
  Report Type: Spontaneous
  Country: US (occurrence: US)
  Receive Date: 20230803
  Receipt Date: 20240105
  Transmission Date: 20240410
  Serious: No
  Sender: FDA-Public Use
  Company Number: US-PFIZER INC-PV202300133709

PATIENT
  Age: 84 Year
  Sex: Male
  Weight: 77.098 kg

DRUGS (6)
  1. VYNDAMAX [Suspect]
     Active Substance: TAFAMIDIS
     Indication: Cardiac disorder
     Dosage: 61 MG, 1X/DAY
     Dates: start: 2022
  2. VYNDAMAX [Suspect]
     Active Substance: TAFAMIDIS
     Dosage: 61 MG, 1X/DAY
     Dates: start: 2021
  3. WARFARIN [Concomitant]
     Active Substance: WARFARIN
     Dosage: 5 MG
     Dates: start: 2000
  4. FINASTERIDE [Concomitant]
     Active Substance: FINASTERIDE
     Dosage: 20 MG
     Dates: start: 2000
  5. ATENOLOL [Concomitant]
     Active Substance: ATENOLOL
     Dosage: 25 MG
     Dates: start: 2000
  6. ATORVASTATIN [Concomitant]
     Active Substance: ATORVASTATIN
     Dosage: 40 MG
     Dates: start: 2000

REACTIONS (3)
  - Dysphonia [Not Recovered/Not Resolved]
  - Night sweats [Not Recovered/Not Resolved]
  - Skin disorder [Not Recovered/Not Resolved]

NARRATIVE: CASE EVENT DATE: 20230101
